FAERS Safety Report 22197083 (Version 2)
Quarter: 2023Q4

REPORT INFORMATION
  Report Type: Report from Study
  Country: BR (occurrence: BR)
  Receive Date: 20230411
  Receipt Date: 20231121
  Transmission Date: 20240110
  Serious: Yes (Other)
  Sender: FDA-Public Use
  Company Number: BR-CELLTRION INC.-2023BR007412

PATIENT

DRUGS (3)
  1. INFLIXIMAB [Suspect]
     Active Substance: INFLIXIMAB
     Indication: Colitis ulcerative
     Dosage: UNK
     Route: 042
     Dates: start: 20221230
  2. INFLIXIMAB [Suspect]
     Active Substance: INFLIXIMAB
     Dosage: 4 AMPOULES EVERY 2 MONTHS
     Route: 042
     Dates: start: 20230904
  3. AZATHIOPRINE [Concomitant]
     Active Substance: AZATHIOPRINE
     Indication: Colitis ulcerative
     Dosage: 3 PILLS A DAY, 12 YEARS AGO - ONGOING
     Route: 048

REACTIONS (5)
  - Polypectomy [Unknown]
  - Polyp [Unknown]
  - Oropharyngeal pain [Unknown]
  - Influenza [Unknown]
  - Intentional dose omission [Unknown]
